FAERS Safety Report 7052463-3 (Version None)
Quarter: 2010Q4

REPORT INFORMATION
  Report Type: 
  Country: None (occurrence: None)
  Receive Date: 20101019
  Receipt Date: 20101011
  Transmission Date: 20110411
  Serious: Yes (Hospitalization)
  Sender: FDA-Public Use
  Company Number: AU-ABBOTT-10P-008-0677005-00

PATIENT
  Sex: Male

DRUGS (1)
  1. SIBUTRAMINE HYDROCHLORIDE MONOHYDRATE [Suspect]
     Indication: WEIGHT DECREASED
     Dates: start: 20101001

REACTIONS (2)
  - HAEMOPTYSIS [None]
  - PERICARDIAL DISEASE [None]
